FAERS Safety Report 12503860 (Version 5)
Quarter: 2016Q4

REPORT INFORMATION
  Report Type: Spontaneous
  Country: US (occurrence: US)
  Receive Date: 20160628
  Receipt Date: 20161025
  Transmission Date: 20170207
  Serious: Yes (Hospitalization, Other)
  Sender: FDA-Public Use
  Company Number: US-PFIZER INC-2016309946

PATIENT
  Age: 73 Year
  Sex: Female
  Weight: 90.72 kg

DRUGS (13)
  1. LASIX [Concomitant]
     Active Substance: FUROSEMIDE
     Indication: PERIPHERAL SWELLING
     Dosage: 20 MG, 1X/DAY
     Dates: start: 2015
  2. OXYCODONE [Suspect]
     Active Substance: OXYCODONE
     Indication: BACK DISORDER
     Dosage: UNK, AS NEEDED
     Dates: start: 20160508, end: 2016
  3. KLOR-CON [Concomitant]
     Active Substance: POTASSIUM CHLORIDE
     Indication: PERIPHERAL SWELLING
     Dosage: 8 MEQ, 2X/DAY
     Dates: start: 2015
  4. NEURONTIN [Concomitant]
     Active Substance: GABAPENTIN
     Dosage: TWO A DAY
     Route: 048
  5. PLAQUENIL [Concomitant]
     Active Substance: HYDROXYCHLOROQUINE SULFATE
     Indication: RHEUMATOID ARTHRITIS
     Dosage: 2X/DAY
     Route: 048
  6. HYDROCODONE [Suspect]
     Active Substance: HYDROCODONE
     Indication: PAIN
     Dosage: 7.5/325 MG
     Route: 048
     Dates: start: 20160504, end: 20160518
  7. MIRAPEX [Concomitant]
     Active Substance: PRAMIPEXOLE DIHYDROCHLORIDE
     Indication: RESTLESS LEGS SYNDROME
     Dosage: LOW DOSE AT BEDTIME
     Route: 048
  8. HYDROCODONE [Suspect]
     Active Substance: HYDROCODONE
     Indication: BACK DISORDER
  9. APAP W/HYDROCODONE [Suspect]
     Active Substance: ACETAMINOPHEN\HYDROCODONE
     Indication: BACK DISORDER
     Dosage: 5-325MG, AS NEEDED (HYDROCODONE 5 MG, PARACETAMOL 325 MG)
     Dates: start: 20160508, end: 2016
  10. NEURONTIN [Concomitant]
     Active Substance: GABAPENTIN
     Dosage: THREE CAPSULES A DAY
     Route: 048
  11. ADVAIR HFA [Concomitant]
     Active Substance: FLUTICASONE PROPIONATE\SALMETEROL XINAFOATE
     Indication: DYSPNOEA
     Dosage: INHALER, 2X/DAY
     Route: 055
  12. ADVAIR HFA [Concomitant]
     Active Substance: FLUTICASONE PROPIONATE\SALMETEROL XINAFOATE
     Dosage: 1 DF, 1X/DAY (1 PUFF EACH DAY)
  13. REVATIO [Suspect]
     Active Substance: SILDENAFIL CITRATE
     Indication: PULMONARY HYPERTENSION
     Dosage: 20 MG, 3X/DAY
     Route: 048
     Dates: start: 2015

REACTIONS (3)
  - Intestinal obstruction [Recovering/Resolving]
  - Intestinal perforation [Recovering/Resolving]
  - Flatulence [Unknown]

NARRATIVE: CASE EVENT DATE: 2016
